FAERS Safety Report 9343751 (Version 3)
Quarter: 2013Q3

REPORT INFORMATION
  Report Type: Spontaneous
  Country: US (occurrence: US)
  Receive Date: 20130612
  Receipt Date: 20130827
  Transmission Date: 20140515
  Serious: Yes (Life-Threatening)
  Sender: FDA-Public Use
  Company Number: US-JNJFOC-20130602688

PATIENT
  Age: 30 Year
  Sex: Female
  Weight: 109.77 kg

DRUGS (8)
  1. REMICADE [Suspect]
     Indication: RHEUMATOID ARTHRITIS
     Dosage: 2ND INFUSION
     Route: 042
     Dates: end: 201304
  2. REMICADE [Suspect]
     Indication: RHEUMATOID ARTHRITIS
     Dosage: 3 MG/KG (4TH INFUSION)
     Route: 042
     Dates: start: 20130221
  3. REMICADE [Suspect]
     Indication: RHEUMATOID ARTHRITIS
     Dosage: 3 MG/KG (3RD INFUSION)
     Route: 042
     Dates: start: 20121227
  4. REMICADE [Suspect]
     Indication: RHEUMATOID ARTHRITIS
     Dosage: 3 MG/KG (2ND INFUSION)
     Route: 042
     Dates: start: 20121127
  5. REMICADE [Suspect]
     Indication: RHEUMATOID ARTHRITIS
     Dosage: 3 MG/KG (1ST INFUSION)
     Route: 042
     Dates: start: 20121113
  6. ZYRTEC [Concomitant]
     Indication: PREMEDICATION
     Route: 048
     Dates: start: 20130221
  7. PREDNISONE [Concomitant]
     Indication: RHEUMATOID ARTHRITIS
     Route: 065
  8. ARAVA [Concomitant]
     Indication: RHEUMATOID ARTHRITIS
     Route: 065

REACTIONS (16)
  - Loss of consciousness [Recovered/Resolved]
  - Anaphylactic reaction [Recovered/Resolved]
  - Anxiety [Recovered/Resolved]
  - Palpitations [Recovered/Resolved]
  - Infusion related reaction [Recovered/Resolved]
  - Dyspnoea [Recovered/Resolved]
  - Bradycardia [Recovered/Resolved]
  - Hypotension [Recovered/Resolved]
  - Confusional state [Recovered/Resolved]
  - Chest pain [Recovered/Resolved]
  - Hypotonia [Recovered/Resolved]
  - Chest discomfort [Recovered/Resolved]
  - Pruritus [Recovered/Resolved]
  - Urticaria [Recovered/Resolved]
  - Rash [Recovered/Resolved]
  - Flushing [Recovered/Resolved]
